FAERS Safety Report 17985525 (Version 1)
Quarter: 2020Q3

REPORT INFORMATION
  Report Type: Spontaneous
  Country: SE (occurrence: SE)
  Receive Date: 20200706
  Receipt Date: 20200706
  Transmission Date: 20201103
  Serious: Yes (Other)
  Sender: FDA-Public Use
  Company Number: SE-B.I. PHARMACEUTICALS,INC./RIDGEFIELD-2020-BI-033361

PATIENT

DRUGS (4)
  1. SIFROL [Suspect]
     Active Substance: PRAMIPEXOLE
     Indication: PRODUCT USED FOR UNKNOWN INDICATION
     Route: 065
  2. PROPAVAN [Concomitant]
     Active Substance: PROPIOMAZINE
     Indication: PRODUCT USED FOR UNKNOWN INDICATION
     Route: 065
  3. ELVANSE [Concomitant]
     Active Substance: LISDEXAMFETAMINE DIMESYLATE
     Indication: ATTENTION DEFICIT HYPERACTIVITY DISORDER
     Route: 065
  4. THERALEN [Concomitant]
     Active Substance: TRIMEPRAZINE
     Indication: PRODUCT USED FOR UNKNOWN INDICATION
     Route: 065

REACTIONS (16)
  - Nausea [Unknown]
  - Stress [Unknown]
  - Muscle twitching [Unknown]
  - Blood test abnormal [Unknown]
  - Illness anxiety disorder [Unknown]
  - Asthenia [Unknown]
  - Dizziness [Unknown]
  - Muscle atrophy [Unknown]
  - Hypervigilance [Unknown]
  - Insomnia [Unknown]
  - Restless legs syndrome [Unknown]
  - Traumatic shock [Unknown]
  - Muscle spasms [Unknown]
  - Drug ineffective [Unknown]
  - Depressed mood [Unknown]
  - Feeling abnormal [Unknown]
